FAERS Safety Report 8141536-X (Version None)
Quarter: 2012Q1

REPORT INFORMATION
  Report Type: 
  Country: None (occurrence: None)
  Receive Date: 20120216
  Receipt Date: 20120206
  Transmission Date: 20120608
  Serious: No
  Sender: FDA-Public Use
  Company Number: US-B.I. PHARMACEUTICALS,INC./RIDGEFIELD-2011-BP-17665BP

PATIENT
  Sex: Female

DRUGS (11)
  1. POTASSIUM CHLORIDE [Concomitant]
     Indication: ELECTROLYTE SUBSTITUTION THERAPY
     Route: 048
  2. COUMADIN [Concomitant]
     Indication: ATRIAL FIBRILLATION
     Dosage: 4 MG
     Route: 048
     Dates: start: 20100101
  3. PREDNISONE [Concomitant]
     Indication: VIRAL INFECTION
     Dosage: 20 MG
     Route: 048
  4. LASIX [Concomitant]
     Indication: HEART VALVE INCOMPETENCE
     Route: 048
  5. PROAIR HFA [Concomitant]
     Indication: ASTHMA
     Route: 055
     Dates: start: 19800101
  6. LOSARTAN POTASSIUM [Concomitant]
     Indication: HYPERTENSION
     Dosage: 100 MG
     Route: 048
  7. SPIRIVA [Suspect]
     Indication: ASTHMA
     Dosage: 18 MCG
     Route: 055
     Dates: start: 20100101
  8. DIGOXIN [Concomitant]
     Indication: ATRIAL FIBRILLATION
     Dosage: 0.25 MG
     Route: 048
     Dates: start: 20100101
  9. XOPENEX [Concomitant]
     Indication: ASTHMA
     Route: 055
     Dates: start: 19800101
  10. PROTONIX [Concomitant]
     Indication: PROPHYLAXIS
     Dosage: 40 MG
     Route: 048
  11. QVAR 40 [Concomitant]
     Indication: ASTHMA
     Route: 055
     Dates: start: 19800101

REACTIONS (6)
  - PHOTOSENSITIVITY REACTION [None]
  - SKIN BURNING SENSATION [None]
  - DYSURIA [None]
  - PRURITUS [None]
  - MICTURITION URGENCY [None]
  - BLADDER DISCOMFORT [None]
